FAERS Safety Report 15474867 (Version 1)
Quarter: 2018Q4

REPORT INFORMATION
  Report Type: Spontaneous
  Country: GB (occurrence: GB)
  Receive Date: 20181008
  Receipt Date: 20181008
  Transmission Date: 20190205
  Serious: Yes (Disabling)
  Sender: FDA-Public Use
  Company Number: GB-TEVA-2018-GB-961778

PATIENT
  Age: 32 Year
  Sex: Female

DRUGS (2)
  1. PREDNISOLONE. [Suspect]
     Active Substance: PREDNISOLONE
     Indication: PNEUMONIA
     Route: 048
     Dates: start: 20171013, end: 20171121
  2. LAMOTRIGINE. [Concomitant]
     Active Substance: LAMOTRIGINE
     Route: 065

REACTIONS (1)
  - Dizziness [Not Recovered/Not Resolved]
